FAERS Safety Report 9597114 (Version 1)
Quarter: 2013Q4

REPORT INFORMATION
  Report Type: Spontaneous
  Country: FR (occurrence: FR)
  Receive Date: 20131004
  Receipt Date: 20131004
  Transmission Date: 20140711
  Serious: Yes (Life-Threatening, Hospitalization)
  Sender: FDA-Public Use
  Company Number: FR-PFIZER INC-2013280401

PATIENT
  Age: 55 Year
  Sex: Female

DRUGS (5)
  1. EFFEXOR [Suspect]
     Dosage: 1125 MG (30 TABLETS OF 37.5 MG), SINGLE
     Route: 048
     Dates: start: 20130906, end: 20130906
  2. NORSET [Suspect]
     Dosage: 450 MG (30 TABLETS OF 15 MG), SINGLE
     Route: 048
     Dates: start: 20130906, end: 20130906
  3. NOCTAMIDE [Suspect]
     Dosage: 14 DF, SINGLE
     Route: 048
     Dates: start: 20130906, end: 20130906
  4. DEPAMIDE [Suspect]
     Dosage: 9000 MG (30 TABLETS OF 300 MG), SINGLE
     Route: 048
     Dates: start: 20130906, end: 20130906
  5. NORDAZEPAM [Suspect]
     Dosage: UNK
     Route: 048
     Dates: start: 20130906, end: 20130906

REACTIONS (6)
  - Intentional overdose [Recovered/Resolved]
  - Coma [Recovered/Resolved]
  - Hypoglycaemia [Recovered/Resolved]
  - Leukopenia [Unknown]
  - Normochromic normocytic anaemia [Unknown]
  - Hyponatraemia [Unknown]
